FAERS Safety Report 14105267 (Version 1)
Quarter: 2017Q4

REPORT INFORMATION
  Report Type: Spontaneous
  Country: BR (occurrence: BR)
  Receive Date: 20171018
  Receipt Date: 20171018
  Transmission Date: 20180321
  Serious: Yes (Hospitalization, Other)
  Sender: FDA-Public Use
  Company Number: BR-SHIRE-BR201726383

PATIENT

DRUGS (4)
  1. MESACOL MMX [Suspect]
     Active Substance: MESALAMINE
     Indication: COLITIS
     Dosage: 1 DF, 2X/DAY:BID
     Route: 048
     Dates: start: 20170930, end: 20171001
  2. MESACOL MMX [Suspect]
     Active Substance: MESALAMINE
     Indication: OFF LABEL USE
  3. GLIMEPIRIDE. [Concomitant]
     Active Substance: GLIMEPIRIDE
     Indication: DIABETES MELLITUS
  4. METFORMIN [Concomitant]
     Active Substance: METFORMIN HYDROCHLORIDE
     Indication: DIABETES MELLITUS

REACTIONS (5)
  - Visual impairment [Recovered/Resolved]
  - Product use in unapproved indication [Recovered/Resolved]
  - Monoplegia [Recovered/Resolved]
  - Vision blurred [Recovered/Resolved]
  - Inappropriate schedule of drug administration [Recovered/Resolved]

NARRATIVE: CASE EVENT DATE: 20171001
